FAERS Safety Report 6698044-2 (Version None)
Quarter: 2010Q2

REPORT INFORMATION
  Report Type: 
  Country: None (occurrence: None)
  Receive Date: 20100426
  Receipt Date: 20100426
  Transmission Date: 20101027
  Serious: No
  Sender: FDA-Public Use
  Company Number: None

PATIENT
  Age: 62 Year
  Sex: Male
  Weight: 73.5 kg

DRUGS (1)
  1. PRAVASTATIN [Suspect]
     Indication: HYPERLIPIDAEMIA
     Dosage: 10 MG HS PO
     Route: 048
     Dates: start: 20090206, end: 20090227

REACTIONS (5)
  - DIZZINESS [None]
  - MALAISE [None]
  - NAUSEA [None]
  - VISION BLURRED [None]
  - VOMITING [None]
